FAERS Safety Report 17682850 (Version 2)
Quarter: 2020Q3

REPORT INFORMATION
  Report Type: Report from Study
  Country: None (occurrence: US)
  Receive Date: 20200420
  Receipt Date: 20200811
  Transmission Date: 20201102
  Serious: Yes (Hospitalization, Other)
  Sender: FDA-Public Use
  Company Number: US-ABBVIE-20K-163-3232057-00

PATIENT
  Age: 55 Year
  Sex: Male
  Weight: 86.26 kg

DRUGS (4)
  1. HUMIRA [Suspect]
     Active Substance: ADALIMUMAB
     Indication: CROHN^S DISEASE
     Dosage: DAY1
     Route: 058
     Dates: start: 2018, end: 2018
  2. HUMIRA [Suspect]
     Active Substance: ADALIMUMAB
     Dosage: DAY 15
     Route: 058
  3. HUMIRA [Suspect]
     Active Substance: ADALIMUMAB
     Indication: CROHN^S DISEASE
     Route: 058
     Dates: start: 201903, end: 2019
  4. HUMIRA [Suspect]
     Active Substance: ADALIMUMAB
     Route: 058
     Dates: start: 201909

REACTIONS (20)
  - Post procedural erythema [Unknown]
  - Diarrhoea [Unknown]
  - Post procedural haemorrhage [Unknown]
  - Constipation [Unknown]
  - Colostomy infection [Not Recovered/Not Resolved]
  - Mucosal prolapse syndrome [Unknown]
  - Abdominal adhesions [Unknown]
  - Inflammation [Unknown]
  - Loss of personal independence in daily activities [Unknown]
  - Stoma site discharge [Unknown]
  - Abdominal hernia obstructive [Unknown]
  - Abdominal pain [Unknown]
  - Stoma site irritation [Recovered/Resolved]
  - Abscess [Unknown]
  - Urinary tract infection [Unknown]
  - Stoma site erythema [Recovered/Resolved]
  - Abdominal discomfort [Unknown]
  - Stoma site discomfort [Recovered/Resolved]
  - Colostomy infection [Recovered/Resolved]
  - Infected fistula [Not Recovered/Not Resolved]

NARRATIVE: CASE EVENT DATE: 2019
